FAERS Safety Report 24408034 (Version 2)
Quarter: 2025Q4

REPORT INFORMATION
  Report Type: Report from Study
  Country: EU (occurrence: EU)
  Receive Date: 20241007
  Receipt Date: 20251006
  Transmission Date: 20260119
  Serious: Yes (Death, Hospitalization, Other)
  Sender: MYLAN
  Company Number: EU-002147023-NVSC2022FR200610

PATIENT
  Age: 72 Year
  Sex: Male
  Weight: 63.1 kg

DRUGS (34)
  1. OXALIPLATIN [Suspect]
     Active Substance: OXALIPLATIN
     Indication: Adenocarcinoma gastric
     Dosage: 85 MG/M2, QD (EVERY 1 CYCLE(S) DAY 1 AND DAY 15 OF CYCLE OF 4 WEEKS IN PREOPERATIVE PERIOD)
     Dates: start: 20220812, end: 20220812
  2. OXALIPLATIN [Suspect]
     Active Substance: OXALIPLATIN
     Indication: Oesophageal adenocarcinoma
     Dosage: 85 MG/M2, QD (EVERY 1 CYCLE(S) DAY 1 AND DAY 15 OF CYCLE OF 4 WEEKS IN POSTOPERATIVE PERIOD)
     Dates: end: 20230116
  3. OXALIPLATIN [Suspect]
     Active Substance: OXALIPLATIN
     Dosage: 85 MG/M2, QD (EVERY 0.5 CYCLE(S) DAY 1 AND DAY 15 OF CYCLE OF 4 WEEKS IN POSTOPERATIVE PERIOD)
     Dates: end: 20221219
  4. OXALIPLATIN [Suspect]
     Active Substance: OXALIPLATIN
     Dosage: UNK
  5. DOCETAXEL [Suspect]
     Active Substance: DOCETAXEL
     Indication: Adenocarcinoma gastric
     Dosage: 50 MILLIGRAM/M2, QD (EVERY 1 CYCLE(S) DAY 1 AND DAY 15 OF CYCLE OF 4 WEEKS IN PREOPERATIVE PERIOD)
     Dates: start: 20220812, end: 20220812
  6. DOCETAXEL [Suspect]
     Active Substance: DOCETAXEL
     Indication: Oesophageal adenocarcinoma
     Dosage: 50 MG/SQ. METER, QD (EVERY 1 CYCLE(S) DAY 1 AND DAY 15 OF CYCLE OF 4 WEEKS IN POSTOPERATIVE PERIOD)
     Dates: end: 20221219
  7. FLUOROURACIL [Suspect]
     Active Substance: FLUOROURACIL
     Indication: Oesophageal adenocarcinoma
     Dosage: 2600 MG/M2, QD (EVERY 0.5 CYCLE(S) DAY 1 AND DAY 15 OF CYCLE OF 4 WEEKS IN PREOPERATIVE PERIOD)
     Dates: start: 20220812, end: 20220812
  8. FLUOROURACIL [Suspect]
     Active Substance: FLUOROURACIL
     Indication: Adenocarcinoma gastric
     Dosage: 2600 MG/M2, QD (EVERY 0.5 CYCLE(S) DAY 1 AND DAY 15 OF CYCLE OF 4 WEEKS IN POSTOPERATIVE PERIOD)
     Dates: end: 20230116
  9. FLUOROURACIL [Suspect]
     Active Substance: FLUOROURACIL
     Dosage: 2600 MG/M2, QD (EVERY 0.5 CYCLE(S) DAY 1 AND DAY 15 OF CYCLE OF 4 WEEKS IN POSTPERATIVE PERIOD)
     Dates: start: 20221219
  10. FLUOROURACIL [Suspect]
     Active Substance: FLUOROURACIL
     Dosage: UNK
  11. LEUCOVORIN [Suspect]
     Active Substance: LEUCOVORIN\LEUCOVORIN CALCIUM
     Indication: Adenocarcinoma gastric
     Dosage: 200 MG/M2, QD (EVERY 1 CYCLE(S) DAY 1 AND DAY 15 OF CYCLE OF 4 WEEKS IN PREOPERATIVE PERIOD)
     Dates: start: 20220812, end: 20220812
  12. LEUCOVORIN [Suspect]
     Active Substance: LEUCOVORIN\LEUCOVORIN CALCIUM
     Indication: Oesophageal adenocarcinoma
     Dosage: 200 MG/M2, QD (EVERY 1 CYCLE(S) DAY 1 AND DAY 15 OF CYCLE OF 4 WEEKS IN PREOPERATIVE PERIOD)
     Dates: end: 20230116
  13. HUMALOG [Concomitant]
     Active Substance: INSULIN LISPRO
     Indication: Product used for unknown indication
     Dosage: 9 INTERNATIONAL UNIT, TID,  MORNING, NOON AND EVENING
  14. LANSOPRAZOLE [Concomitant]
     Active Substance: LANSOPRAZOLE
     Indication: Product used for unknown indication
     Dosage: 30 MILLIGRAM, BID
  15. CALCIUM PHOSPHATE, DIBASIC, ANHYDROUS\MAGNESIUM GLYCEROPHOSPHATE\PHOSP [Concomitant]
     Active Substance: CALCIUM PHOSPHATE, DIBASIC, ANHYDROUS\MAGNESIUM GLYCEROPHOSPHATE\PHOSPHORIC ACID\SODIUM PHOSPHATE, D
     Indication: Product used for unknown indication
     Dosage: 50 DROP, BID, 50 DROP (1/12 MILLILITRE) EVERY 12 HOUR(S)
  16. POTASSIUM CHLORIDE [Concomitant]
     Active Substance: POTASSIUM CHLORIDE
     Indication: Product used for unknown indication
     Dosage: UNK
  17. RACECADOTRIL [Concomitant]
     Active Substance: RACECADOTRIL
     Indication: Product used for unknown indication
     Dosage: UNK, PRN
  18. INNOHEP [Concomitant]
     Active Substance: TINZAPARIN SODIUM
     Indication: Product used for unknown indication
     Dosage: 1000 INTERNATIONAL UNIT, QD
  19. PREDNISONE [Concomitant]
     Active Substance: PREDNISONE
     Indication: Product used for unknown indication
     Dosage: UNK
  20. LEUCOVORIN CALCIUM [Concomitant]
     Active Substance: LEUCOVORIN CALCIUM
     Indication: Product used for unknown indication
     Dosage: UNK
  21. EMEND [Concomitant]
     Active Substance: APREPITANT
     Indication: Premedication
     Dosage: UNK
  22. SOLU-MEDROL [Concomitant]
     Active Substance: METHYLPREDNISOLONE SODIUM SUCCINATE
     Indication: Premedication
     Dosage: UNK
  23. ONDANSETRON [Concomitant]
     Active Substance: ONDANSETRON
     Indication: Premedication
     Dosage: UNK
  24. ALLOPURINOL [Concomitant]
     Active Substance: ALLOPURINOL
     Indication: Immunotoxicity
     Dosage: UNK
  25. PANTOPRAZOLE [Concomitant]
     Active Substance: PANTOPRAZOLE
     Indication: Immunotoxicity
     Dosage: UNK
  26. TRIMEBUTINE [Concomitant]
     Active Substance: TRIMEBUTINE
     Indication: Immunotoxicity
     Dosage: UNK
  27. SIMVASTATIN [Concomitant]
     Active Substance: SIMVASTATIN
     Indication: Immunotoxicity
     Dosage: UNK
  28. SPIRONOLACTONE [Concomitant]
     Active Substance: SPIRONOLACTONE
     Indication: Immunotoxicity
     Dosage: UNK
  29. FUSIDIC ACID [Concomitant]
     Active Substance: FUSIDIC ACID
     Indication: Immunotoxicity
     Dosage: UNK
  30. ZOPICLONE [Concomitant]
     Active Substance: ZOPICLONE
     Indication: Product used for unknown indication
     Dosage: UNK
  31. ACETAMINOPHEN [Concomitant]
     Active Substance: ACETAMINOPHEN
     Indication: Immunotoxicity
     Dosage: UNK
  32. AUGMENTIN [Concomitant]
     Active Substance: AMOXICILLIN\CLAVULANATE POTASSIUM
     Indication: Immunotoxicity
     Dosage: UNK
  33. LERCANIDIPINE [Concomitant]
     Active Substance: LERCANIDIPINE
     Indication: Immunotoxicity
     Dosage: UNK
  34. LANTUS [Concomitant]
     Active Substance: INSULIN GLARGINE
     Indication: Product used for unknown indication
     Dosage: UNK

REACTIONS (6)
  - Pneumocystis jirovecii pneumonia [Fatal]
  - Diabetes mellitus [Recovered/Resolved]
  - Immunotoxicity [Recovering/Resolving]
  - Colonic abscess [Recovered/Resolved]
  - Diverticulitis [Recovered/Resolved]
  - Interstitial lung disease [Recovered/Resolved]

NARRATIVE: CASE EVENT DATE: 20220820
